FAERS Safety Report 21059903 (Version 1)
Quarter: 2022Q3

REPORT INFORMATION
  Report Type: Spontaneous
  Country: CN (occurrence: CN)
  Receive Date: 20220708
  Receipt Date: 20220708
  Transmission Date: 20221027
  Serious: Yes (Other)
  Sender: FDA-Public Use
  Company Number: CN-009507513-2207CHN002096

PATIENT
  Age: 45 Year
  Sex: Female
  Weight: 50 kg

DRUGS (1)
  1. JANUVIA [Suspect]
     Active Substance: SITAGLIPTIN PHOSPHATE
     Indication: Type 2 diabetes mellitus
     Dosage: 100 MG, QD
     Route: 048
     Dates: start: 20220508, end: 20220510

REACTIONS (2)
  - Blood creatine phosphokinase increased [Recovering/Resolving]
  - Movement disorder [Unknown]

NARRATIVE: CASE EVENT DATE: 20220510
